FAERS Safety Report 23679029 (Version 1)
Quarter: 2024Q1

REPORT INFORMATION
  Report Type: Spontaneous
  Country: US (occurrence: US)
  Receive Date: 20240327
  Receipt Date: 20240327
  Transmission Date: 20240410
  Serious: Yes (Other)
  Sender: FDA-Public Use
  Company Number: US-ASCENDIS PHARMA-2024US004690

PATIENT

DRUGS (1)
  1. SKYTROFA [Suspect]
     Active Substance: LONAPEGSOMATROPIN-TCGD
     Indication: Growth hormone deficiency
     Dosage: 5.2 MG, WEEKLY
     Route: 058
     Dates: start: 20231112, end: 20240213

REACTIONS (1)
  - Injection site atrophy [Unknown]
